FAERS Safety Report 9333972 (Version 1)
Quarter: 2013Q2

REPORT INFORMATION
  Report Type: Spontaneous
  Country: US (occurrence: US)
  Receive Date: 20130606
  Receipt Date: 20130606
  Transmission Date: 20140414
  Serious: No
  Sender: FDA-Public Use
  Company Number: US-AMGEN-USASP2013002033

PATIENT
  Age: 70 Year
  Sex: Female

DRUGS (8)
  1. PROLIA [Suspect]
     Indication: OSTEOPOROSIS POSTMENOPAUSAL
     Dosage: UNK
     Dates: start: 20121203
  2. PLAVIX [Concomitant]
     Dosage: 75 MG, UNK
  3. LOVASTATIN [Concomitant]
     Dosage: 20 MG, UNK
  4. CARVEDILOL [Concomitant]
     Dosage: 3.125 MG, UNK
  5. ASPIRIN [Concomitant]
     Dosage: 325 MG, UNK
  6. DEXILANT [Concomitant]
     Dosage: 60 MG, UNK
  7. VITAMIN D3 [Concomitant]
     Dosage: 5000 IU, UNK
  8. CALCIUM WITH VITAMIN D             /00944201/ [Concomitant]
     Dosage: 600 MG, UNK

REACTIONS (9)
  - Chills [Unknown]
  - Gait disturbance [Unknown]
  - Dry skin [Unknown]
  - Micturition urgency [Unknown]
  - Arthralgia [Unknown]
  - Pollakiuria [Unknown]
  - Myalgia [Unknown]
  - Back pain [Unknown]
  - Pain in extremity [Unknown]
